FAERS Safety Report 21738543 (Version 1)
Quarter: 2022Q4

REPORT INFORMATION
  Report Type: Spontaneous
  Country: HR (occurrence: HR)
  Receive Date: 20221216
  Receipt Date: 20221216
  Transmission Date: 20230113
  Serious: Yes (Hospitalization, Other)
  Sender: FDA-Public Use
  Company Number: None

PATIENT
  Age: 66 Year
  Sex: Male

DRUGS (6)
  1. CISPLATIN [Suspect]
     Active Substance: CISPLATIN
     Indication: Lung adenocarcinoma
     Dosage: 150 MG
     Dates: start: 2020, end: 2020
  2. PEMETREXED [Suspect]
     Active Substance: PEMETREXED
     Indication: Product used for unknown indication
     Dosage: 1000 MG INTRAVENOUS
     Dates: start: 20210308
  3. PEMBROLIZUMAB [Suspect]
     Active Substance: PEMBROLIZUMAB
     Indication: Lung adenocarcinoma
     Dosage: 200 MG
     Dates: start: 20200728
  4. PEMBROLIZUMAB [Suspect]
     Active Substance: PEMBROLIZUMAB
     Indication: Product used for unknown indication
     Dosage: 200 MG INTRAVENOUS
     Dates: start: 20200308
  5. PEMETREXED [Suspect]
     Active Substance: PEMETREXED
     Indication: Lung adenocarcinoma
     Dosage: 1000 MILLIGRAM
     Dates: start: 2020, end: 20210119
  6. CISPLATIN [Suspect]
     Active Substance: CISPLATIN
     Indication: Product used for unknown indication
     Dosage: 130 MG
     Dates: start: 2020, end: 20201119

REACTIONS (16)
  - Platelet count decreased [Unknown]
  - Red blood cell count decreased [Unknown]
  - Leukopenia [Unknown]
  - Mean cell haemoglobin increased [Unknown]
  - Macrocytosis [Unknown]
  - Haematocrit decreased [Unknown]
  - Malignant neoplasm progression [Unknown]
  - Basophil count increased [Unknown]
  - Haemoglobin decreased [Unknown]
  - Neutropenia [Unknown]
  - Mean cell haemoglobin concentration increased [Unknown]
  - Pulmonary embolism [Unknown]
  - Monocyte count decreased [Unknown]
  - Dyspnoea exertional [Unknown]
  - Eosinophil count increased [Unknown]
  - Lymphocyte count increased [Unknown]

NARRATIVE: CASE EVENT DATE: 20200101
